FAERS Safety Report 8149553-0 (Version None)
Quarter: 2012Q1

REPORT INFORMATION
  Report Type: 
  Country: None (occurrence: None)
  Receive Date: 20120218
  Receipt Date: 20111024
  Transmission Date: 20120608
  Serious: No
  Sender: FDA-Public Use
  Company Number: US-ALLERGAN-1114107US

PATIENT
  Age: 60 Year
  Sex: Male
  Weight: 203 kg

DRUGS (7)
  1. OMEPRAZOLE [Concomitant]
  2. VENLAFAXINE [Concomitant]
  3. PROMETHAZINE [Concomitant]
  4. PROPANAMIDE [Concomitant]
  5. TOPAMAX [Concomitant]
  6. GABAPENTIN [Concomitant]
  7. BOTULINUM TOXIN TYPE A [Suspect]
     Indication: MIGRAINE
     Dosage: UNK
     Route: 030
     Dates: start: 20110920, end: 20110920

REACTIONS (6)
  - MIGRAINE [None]
  - FATIGUE [None]
  - EYELID PTOSIS [None]
  - DRUG INEFFECTIVE [None]
  - DYSPNOEA [None]
  - MUSCULAR WEAKNESS [None]
